FAERS Safety Report 4315734-7 (Version None)
Quarter: 2004Q1

REPORT INFORMATION
  Report Type: 
  Country: None (occurrence: None)
  Receive Date: 20040310
  Receipt Date: 20040226
  Transmission Date: 20041129
  Serious: No
  Sender: FDA-Public Use
  Company Number: 2003AP04008

PATIENT
  Age: 75 Year
  Sex: Male

DRUGS (19)
  1. ZOLADEX [Suspect]
     Indication: PROSTATE CANCER
     Dosage: 10.8 MG Q3MO SQ
     Dates: start: 20030120
  2. VOLTAREN [Concomitant]
  3. MARZULENE [Concomitant]
  4. DIAZEPAM [Concomitant]
  5. CYANOCOBALAMIN [Concomitant]
  6. TEGRETOL [Concomitant]
  7. KALIMATE [Concomitant]
  8. NOVAMIN [Concomitant]
  9. MS CONTIN [Concomitant]
  10. RENIVACE [Concomitant]
  11. ASPIRIN [Concomitant]
  12. MOHRUS [Concomitant]
  13. DIAZEPAM [Concomitant]
  14. CINAL [Concomitant]
  15. MYONAL [Concomitant]
  16. SELBEX [Concomitant]
  17. GASTER [Concomitant]
  18. CARBOPLATIN [Concomitant]
  19. PACLITAXEL [Concomitant]

REACTIONS (10)
  - CHEST X-RAY ABNORMAL [None]
  - DRUG INEFFECTIVE [None]
  - DYSPNOEA [None]
  - FAECES PALE [None]
  - METASTASES TO LUNG [None]
  - PAIN [None]
  - PNEUMONIA LIPOID [None]
  - PULMONARY FIBROSIS [None]
  - PYREXIA [None]
  - TUMOUR MARKER INCREASED [None]
